FAERS Safety Report 15802716 (Version 1)
Quarter: 2019Q1

REPORT INFORMATION
  Report Type: Spontaneous
  Country: US (occurrence: US)
  Receive Date: 20190107
  Receipt Date: 20190107
  Transmission Date: 20190417
  Serious: No
  Sender: FDA-Public Use
  Company Number: None

PATIENT

DRUGS (2)
  1. DG HEALTH STERILE ADVANCED RELIEF EYE [Suspect]
     Active Substance: DEXTRAN 70\POLYETHYLENE GLYCOL 400\POVIDONE\TETRAHYDROZOLINE HYDROCHLORIDE
  2. EAR WAX REMOVAL DROPS [Suspect]
     Active Substance: CARBAMIDE PEROXIDE

REACTIONS (5)
  - Ocular hyperaemia [None]
  - Eye irritation [None]
  - Product appearance confusion [None]
  - Incorrect route of product administration [None]
  - Wrong product administered [None]

NARRATIVE: CASE EVENT DATE: 2018
